FAERS Safety Report 10229551 (Version 1)
Quarter: 2014Q2

REPORT INFORMATION
  Report Type: Spontaneous
  Country: AT (occurrence: None)
  Receive Date: 20140609
  Receipt Date: 20140609
  Transmission Date: 20141212
  Serious: Yes (Hospitalization)
  Sender: FDA-Public Use
  Company Number: SYM-2014-21661

PATIENT
  Age: 17 Year
  Sex: Male

DRUGS (1)
  1. DILTIAZEM HYDROCHLORIDE (DILTIAZEM HYDROCHLORIDE) [Suspect]
     Indication: PRODUCT USED FOR UNKNOWN INDICATION
     Route: 048

REACTIONS (2)
  - Overdose [None]
  - Shock [None]
